FAERS Safety Report 10261282 (Version 1)
Quarter: 2014Q2

REPORT INFORMATION
  Report Type: Spontaneous
  Country: US (occurrence: US)
  Receive Date: 20140626
  Receipt Date: 20140626
  Transmission Date: 20141212
  Serious: No
  Sender: FDA-Public Use
  Company Number: US-JNJFOC-20140609324

PATIENT
  Age: 65 Year
  Sex: Male

DRUGS (2)
  1. SANDOZ FENTANYL TRANSDERMAL SYSTEM [Suspect]
     Indication: PAIN
     Route: 062
  2. TRAMADOL [Concomitant]
     Indication: PAIN
     Route: 048

REACTIONS (3)
  - Drug dose omission [Unknown]
  - Drug withdrawal syndrome [Not Recovered/Not Resolved]
  - Product packaging issue [Unknown]
